FAERS Safety Report 7484240-3 (Version None)
Quarter: 2011Q2

REPORT INFORMATION
  Report Type: 
  Country: None (occurrence: None)
  Receive Date: 20110517
  Receipt Date: 20110513
  Transmission Date: 20111010
  Serious: Yes (Death)
  Sender: FDA-Public Use
  Company Number: PHHY2011US40980

PATIENT
  Sex: Male

DRUGS (1)
  1. AFINITOR [Suspect]
     Indication: LARYNGEAL CANCER
     Dosage: 10 MG DAILY
     Route: 048
     Dates: start: 20110505

REACTIONS (1)
  - DEATH [None]
